FAERS Safety Report 11990220 (Version 2)
Quarter: 2017Q1

REPORT INFORMATION
  Report Type: Spontaneous
  Country: US (occurrence: US)
  Receive Date: 20160202
  Receipt Date: 20170209
  Transmission Date: 20170428
  Serious: No
  Sender: FDA-Public Use
  Company Number: US-ROCHE-1679505

PATIENT
  Sex: Male
  Weight: 37.23 kg

DRUGS (1)
  1. NUTROPIN AQ [Suspect]
     Active Substance: SOMATROPIN
     Indication: HYPOTHYROIDISM
     Dosage: 20MG/2ML
     Route: 058
     Dates: start: 20131001

REACTIONS (5)
  - Drug dose omission [Unknown]
  - Pain in jaw [Unknown]
  - Malaise [Recovered/Resolved]
  - Pain in extremity [Unknown]
  - Off label use [Unknown]
